FAERS Safety Report 9816667 (Version 1)
Quarter: 2014Q1

REPORT INFORMATION
  Report Type: Spontaneous
  Country: US (occurrence: US)
  Receive Date: 20140114
  Receipt Date: 20140114
  Transmission Date: 20141002
  Serious: Yes (Other)
  Sender: FDA-Public Use
  Company Number: US-ENDO PHARMACEUTICALS INC.-PERC20130090

PATIENT
  Sex: Male

DRUGS (6)
  1. PERCOCET [Suspect]
     Indication: DRUG ABUSE
     Dosage: UNKNOWN
     Route: 048
  2. VICODIN [Suspect]
     Indication: DRUG ABUSE
     Dosage: UNKNOWN
     Route: 065
  3. DEMEROL [Suspect]
     Indication: DRUG ABUSE
     Dosage: UNKNOWN
     Route: 065
  4. CODEINE [Suspect]
     Indication: DRUG ABUSE
     Dosage: UNKNOWN
     Route: 065
  5. COCAINE [Suspect]
     Indication: DRUG ABUSE
     Dosage: UNKNOWN
     Route: 065
  6. ALCOHOL [Suspect]
     Indication: DRUG ABUSE
     Dosage: UNKNOWN
     Route: 065

REACTIONS (1)
  - Drug abuse [Unknown]
